FAERS Safety Report 8442699-9 (Version None)
Quarter: 2012Q2

REPORT INFORMATION
  Report Type: 
  Country: None (occurrence: None)
  Receive Date: 20120615
  Receipt Date: 20120605
  Transmission Date: 20120825
  Serious: Yes (Hospitalization)
  Sender: FDA-Public Use
  Company Number: JP-EISAI INC-E2080-00404-CLI-JP

PATIENT
  Sex: Male
  Weight: 19.3 kg

DRUGS (14)
  1. RUFINAMIDE [Interacting]
     Dosage: OPEN LABEL (200 MG) + BLINDED THERAPY (8 TABLETS)
     Route: 048
     Dates: start: 20110503, end: 20110504
  2. RUFINAMIDE [Interacting]
     Dosage: OPEN LABEL (800 MG) + BLINDED THERAPY (2 TABLETS)
     Route: 048
     Dates: start: 20110507, end: 20110508
  3. VALPROATE SODIUM [Interacting]
     Route: 048
     Dates: start: 20110817, end: 20110818
  4. RUFINAMIDE [Interacting]
     Dosage: OPEN LABEL (400 MG) + BLINDED THERAPY (6 TABLETS)
     Route: 048
     Dates: start: 20110505, end: 20110506
  5. PHENOBARBITAL TAB [Interacting]
     Route: 048
     Dates: start: 20110818, end: 20120607
  6. ZONISAMIDE [Concomitant]
     Indication: LENNOX-GASTAUT SYNDROME
     Route: 048
     Dates: start: 20091001, end: 20120325
  7. RUFINAMIDE [Suspect]
     Indication: LENNOX-GASTAUT SYNDROME
     Dosage: DOUBLE BLIND TRANSITION PERIOD
     Route: 048
     Dates: start: 20110406, end: 20110502
  8. ZONISAMIDE [Concomitant]
     Route: 048
     Dates: start: 20120326
  9. VALPROATE SODIUM [Interacting]
     Indication: LENNOX-GASTAUT SYNDROME
     Route: 048
     Dates: start: 20100607, end: 20110816
  10. PHENOBARBITAL TAB [Interacting]
     Indication: LENNOX-GASTAUT SYNDROME
     Route: 048
     Dates: start: 20101123
  11. PHENOBARBITAL TAB [Interacting]
     Route: 048
     Dates: start: 20120608
  12. VALPROATE SODIUM [Interacting]
     Route: 048
     Dates: start: 20110820
  13. PHENOBARBITAL TAB [Interacting]
     Route: 048
     Dates: start: 20101123, end: 20110817
  14. RUFINAMIDE [Interacting]
     Route: 048
     Dates: start: 20110509

REACTIONS (2)
  - DRUG INTERACTION [None]
  - STATUS EPILEPTICUS [None]
